FAERS Safety Report 9649064 (Version 1)
Quarter: 2013Q4

REPORT INFORMATION
  Report Type: Spontaneous
  Country: US (occurrence: US)
  Receive Date: 20131028
  Receipt Date: 20131028
  Transmission Date: 20140711
  Serious: Yes (Other)
  Sender: FDA-Public Use
  Company Number: CHPA2013US015929

PATIENT
  Age: 49 Year
  Sex: Female

DRUGS (8)
  1. EXCEDRIN TENSION HEADACHE [Suspect]
     Indication: TENSION HEADACHE
     Dosage: UNK, UNK
     Dates: end: 201203
  2. EXCEDRIN TENSION HEADACHE [Suspect]
     Indication: MIGRAINE
  3. EXCEDRIN TENSION HEADACHE [Suspect]
     Indication: SINUS HEADACHE
  4. EXCEDRIN TENSION HEADACHE [Suspect]
     Indication: OFF LABEL USE
  5. IBUPROFEN [Concomitant]
  6. MOTRIN [Concomitant]
  7. REGLAN                                  /USA/ [Concomitant]
  8. MIDRIN [Concomitant]

REACTIONS (2)
  - Rheumatic disorder [Unknown]
  - Dry skin [Unknown]
